FAERS Safety Report 10544035 (Version 1)
Quarter: 2014Q4

REPORT INFORMATION
  Report Type: Spontaneous
  Country: FR (occurrence: None)
  Receive Date: 20141023
  Receipt Date: 20141023
  Transmission Date: 20150529
  Serious: Yes (Hospitalization)
  Sender: FDA-Public Use
  Company Number: 2581173

PATIENT
  Age: 60 Year
  Sex: Female

DRUGS (7)
  1. ZYLORIC [Concomitant]
     Active Substance: ALLOPURINOL
  2. AMLODIPINE [Concomitant]
     Active Substance: AMLODIPINE BESYLATE
  3. TRIATEC [Concomitant]
     Active Substance: RAMIPRIL
  4. PACLITAXEL ACTAVIS [Suspect]
     Active Substance: PACLITAXEL
     Indication: ENDOMETRIAL CANCER
     Dosage: 300 MG MILLGRAM(S), 1 CYCLICAL, INTRAVENOUS
     Route: 042
  5. STILNOX [Concomitant]
     Active Substance: ZOLPIDEM TARTRATE
  6. CARBOPLATIN. [Suspect]
     Active Substance: CARBOPLATIN
     Indication: ENDOMETRIAL CANCER
     Dosage: 400 MG MILLIGRAM(S), 1 CYCLICAL, INTRAVNEOUS
     Route: 042
     Dates: start: 20140805
  7. CONTRAMAL [Concomitant]
     Active Substance: TRAMADOL HYDROCHLORIDE

REACTIONS (5)
  - Hypotension [None]
  - Asthenia [None]
  - Oxygen saturation decreased [None]
  - Anaphylactic reaction [None]
  - Laryngeal discomfort [None]

NARRATIVE: CASE EVENT DATE: 20140805
